FAERS Safety Report 10081809 (Version 2)
Quarter: 2014Q2

REPORT INFORMATION
  Report Type: Spontaneous
  Country: US (occurrence: US)
  Receive Date: 20140416
  Receipt Date: 20140501
  Transmission Date: 20141212
  Serious: Yes (Hospitalization)
  Sender: FDA-Public Use
  Company Number: US-ACTELION-A-US2014-97268

PATIENT
  Age: 38 Year
  Sex: Female

DRUGS (4)
  1. VELETRI [Suspect]
     Indication: PULMONARY ARTERIAL HYPERTENSION
     Dosage: 22.7 NG/KG, PER MIN
     Route: 042
     Dates: start: 20110112
  2. LETAIRIS [Concomitant]
  3. ADCIRCA [Concomitant]
  4. COUMADIN [Concomitant]

REACTIONS (3)
  - Pleurisy [Unknown]
  - Chest pain [Unknown]
  - Pneumonia [Unknown]
